FAERS Safety Report 13587811 (Version 1)
Quarter: 2017Q2

REPORT INFORMATION
  Report Type: Other
  Country: IT (occurrence: IT)
  Receive Date: 20170527
  Receipt Date: 20170527
  Transmission Date: 20170830
  Serious: Yes (Other)
  Sender: FDA-Public Use
  Company Number: IT-AJANTA PHARMA USA INC.-2021296

PATIENT

DRUGS (2)
  1. LANSOPRAZOLE (ANDA 203957) [Suspect]
     Active Substance: LANSOPRAZOLE
     Indication: ABDOMINAL PAIN UPPER
  2. CEFTRIAXONE. [Suspect]
     Active Substance: CEFTRIAXONE

REACTIONS (2)
  - Drug interaction [Recovered/Resolved]
  - Long QT syndrome [Recovered/Resolved]

NARRATIVE: CASE EVENT DATE: 20170411
